FAERS Safety Report 7982673-X (Version None)
Quarter: 2011Q4

REPORT INFORMATION
  Report Type: 
  Country: None (occurrence: None)
  Receive Date: 20111215
  Receipt Date: 20111213
  Transmission Date: 20120403
  Serious: No
  Sender: FDA-Public Use
  Company Number: US-PFIZER INC-2011304431

PATIENT
  Sex: Male

DRUGS (6)
  1. ZITHROMAX [Suspect]
     Indication: SINUSITIS
     Dosage: 500 MG, UNK
     Route: 048
     Dates: start: 20100101
  2. ZITHROMAX [Suspect]
     Dosage: 250 MG, DAILY
     Route: 048
     Dates: start: 20110101, end: 20110101
  3. ZITHROMAX [Suspect]
     Dosage: 250 MG, DAILY
     Route: 048
     Dates: start: 20110101, end: 20111004
  4. ZITHROMAX [Suspect]
     Dosage: 500 MG, UNK
     Route: 048
     Dates: start: 20110101, end: 20110101
  5. ZITHROMAX [Suspect]
     Dosage: 500 MG, UNK
     Route: 048
     Dates: start: 20110930, end: 20110101
  6. ZITHROMAX [Suspect]
     Dosage: 250 MG, DAILY
     Route: 048

REACTIONS (1)
  - TINNITUS [None]
